FAERS Safety Report 16661568 (Version 1)
Quarter: 2019Q3

REPORT INFORMATION
  Report Type: Spontaneous
  Country: JP (occurrence: JP)
  Receive Date: 20190802
  Receipt Date: 20190802
  Transmission Date: 20191004
  Serious: Yes (Other)
  Sender: FDA-Public Use
  Company Number: JP-BAYER-2019-142872

PATIENT
  Age: 40 Year
  Sex: Female

DRUGS (6)
  1. ADEMPAS [Suspect]
     Active Substance: RIOCIGUAT
     Dosage: DAILY DOSE 7.5 MG
     Route: 048
  2. AZOSEMIDE [Concomitant]
     Active Substance: AZOSEMIDE
  3. VENTAVIS [Suspect]
     Active Substance: ILOPROST
     Indication: PULMONARY ARTERIAL HYPERTENSION
     Dosage: DAILY DOSE 5 ?G
     Route: 055
  4. TOLVAPTAN [Concomitant]
     Active Substance: TOLVAPTAN
  5. SPIRONOLACTONE. [Concomitant]
     Active Substance: SPIRONOLACTONE
  6. MACITENTAN [Concomitant]
     Active Substance: MACITENTAN

REACTIONS (2)
  - Oedema [Recovered/Resolved]
  - Renal impairment [Recovered/Resolved]
